FAERS Safety Report 10048135 (Version 1)
Quarter: 2014Q1

REPORT INFORMATION
  Report Type: Spontaneous
  Country: US (occurrence: US)
  Receive Date: 20140331
  Receipt Date: 20140331
  Transmission Date: 20141002
  Serious: No
  Sender: FDA-Public Use
  Company Number: US-PFIZER INC-2014086388

PATIENT
  Sex: 0

DRUGS (2)
  1. DILANTIN-125 [Suspect]
     Dosage: UNK
     Dates: start: 1992
  2. KEPPRA [Suspect]
     Dosage: UNK

REACTIONS (2)
  - Gingival disorder [Unknown]
  - Tooth disorder [Unknown]
